FAERS Safety Report 10876913 (Version 1)
Quarter: 2015Q1

REPORT INFORMATION
  Report Type: Spontaneous
  Country: US (occurrence: US)
  Receive Date: 20150302
  Receipt Date: 20150302
  Transmission Date: 20150721
  Serious: Yes (Other)
  Sender: FDA-Public Use
  Company Number: US-BEH-2015049079

PATIENT
  Sex: Female
  Weight: 84 kg

DRUGS (21)
  1. METOPROLOL [Concomitant]
     Active Substance: METOPROLOL
  2. CALCITROL [Concomitant]
     Active Substance: CALCITRIOL
  3. ABILIFY [Concomitant]
     Active Substance: ARIPIPRAZOLE
  4. MULTIVITAMINS [Concomitant]
     Active Substance: VITAMINS
  5. CALCIUM CITRATE [Concomitant]
     Active Substance: CALCIUM CITRATE
  6. HIZENTRA [Suspect]
     Active Substance: HUMAN IMMUNOGLOBULIN G
     Indication: HYPOGAMMAGLOBULINAEMIA
     Route: 058
  7. TUMS [Concomitant]
     Active Substance: CALCIUM CARBONATE
  8. PREDNISONE. [Concomitant]
     Active Substance: PREDNISONE
  9. HYDROCODONE BITARTRATE AND ACETAMINOPHEN [Concomitant]
     Active Substance: ACETAMINOPHEN\HYDROCODONE BITARTRATE
  10. LORAZEPAM. [Concomitant]
     Active Substance: LORAZEPAM
  11. SODIUM BICARB [Concomitant]
  12. KEFLEX [Concomitant]
     Active Substance: CEPHALEXIN
  13. FLUOXETINE [Concomitant]
     Active Substance: FLUOXETINE\FLUOXETINE HYDROCHLORIDE
  14. ACETAMINOPHEN. [Concomitant]
     Active Substance: ACETAMINOPHEN
  15. EPIPEN [Concomitant]
     Active Substance: EPINEPHRINE
  16. GLYBURIDE. [Concomitant]
     Active Substance: GLYBURIDE
  17. VITAMIN D [Concomitant]
     Active Substance: CHOLECALCIFEROL
  18. LYRICA [Concomitant]
     Active Substance: PREGABALIN
  19. IRON [Concomitant]
     Active Substance: IRON
  20. DIPHENHYDRAMINE [Concomitant]
     Active Substance: DIPHENHYDRAMINE
  21. LIDOCAINE. [Concomitant]
     Active Substance: LIDOCAINE

REACTIONS (1)
  - Dialysis [Unknown]
